FAERS Safety Report 8872287 (Version 3)
Quarter: 2012Q4

REPORT INFORMATION
  Report Type: 
  Country: JP (occurrence: JP)
  Receive Date: 20121030
  Receipt Date: 20121228
  Transmission Date: 20130627
  Serious: Yes (Life-Threatening, Hospitalization, Other)
  Sender: FDA-Public Use
  Company Number: JP-ROCHE-1147611

PATIENT
  Age: 74 Year
  Sex: Male
  Weight: 53 kg

DRUGS (12)
  1. RIVOTRIL [Suspect]
     Indication: RESTLESS LEGS SYNDROME
     Dosage: Dosage is uncertain.
     Route: 048
     Dates: start: 20120531, end: 20120614
  2. RIVOTRIL [Interacting]
     Indication: RESTLESS LEGS SYNDROME
     Route: 048
     Dates: start: 20120615, end: 20120624
  3. ANCARON [Interacting]
     Indication: ATRIAL FIBRILLATION
     Route: 048
     Dates: start: 20110325, end: 20111214
  4. ANCARON [Interacting]
     Indication: ATRIAL FIBRILLATION
     Route: 048
     Dates: start: 20110325, end: 20111214
  5. ANCARON [Interacting]
     Indication: ATRIAL FLUTTER
     Route: 048
     Dates: start: 20111214, end: 201204
  6. ANCARON [Interacting]
     Indication: ATRIAL FIBRILLATION
     Route: 048
     Dates: start: 20111214, end: 201204
  7. ANCARON [Interacting]
     Indication: ATRIAL FLUTTER
     Route: 048
     Dates: start: 201204, end: 20120619
  8. ANCARON [Interacting]
     Indication: ATRIAL FIBRILLATION
     Route: 048
     Dates: start: 201204, end: 20120619
  9. ANCARON [Interacting]
     Indication: ATRIAL FIBRILLATION
     Route: 048
     Dates: start: 20120620
  10. ANCARON [Interacting]
     Indication: ATRIAL FLUTTER
     Route: 048
     Dates: start: 20120620
  11. THYRADIN-S [Concomitant]
     Indication: HYPOTHYROIDISM
     Route: 048
     Dates: start: 20111019
  12. PRECIPITATED CALCIUM CARBONATE [Concomitant]
     Indication: HYPERPARATHYROIDISM SECONDARY
     Route: 048

REACTIONS (3)
  - Bradycardia [Recovered/Resolved]
  - Hyperkalaemia [Recovered/Resolved]
  - Drug interaction [Unknown]
